FAERS Safety Report 8346255-2 (Version None)
Quarter: 2012Q2

REPORT INFORMATION
  Report Type: 
  Country: None (occurrence: None)
  Receive Date: 20120507
  Receipt Date: 20120425
  Transmission Date: 20120825
  Serious: Yes (Life-Threatening, Hospitalization, Other)
  Sender: FDA-Public Use
  Company Number: ADR-2012-00411

PATIENT
  Age: 18 Year
  Sex: Male

DRUGS (2)
  1. LIORESAL [Suspect]
     Indication: MUSCLE SPASTICITY
     Route: 037
  2. LIORESAL [Suspect]
     Indication: CEREBRAL PALSY
     Route: 037

REACTIONS (13)
  - IMPLANT SITE INDURATION [None]
  - PNEUMONIA ASPIRATION [None]
  - WRONG TECHNIQUE IN DRUG USAGE PROCESS [None]
  - MUSCLE TIGHTNESS [None]
  - OVERDOSE [None]
  - IMPLANT SITE FIBROSIS [None]
  - COMPLICATION OF DEVICE REMOVAL [None]
  - DEVICE DAMAGE [None]
  - ABNORMAL BEHAVIOUR [None]
  - VOMITING [None]
  - IMPLANT SITE REACTION [None]
  - HYPOTENSION [None]
  - PROCEDURAL COMPLICATION [None]
